FAERS Safety Report 18159070 (Version 2)
Quarter: 2020Q3

REPORT INFORMATION
  Report Type: Spontaneous
  Country: US (occurrence: US)
  Receive Date: 20200817
  Receipt Date: 20200905
  Transmission Date: 20201103
  Serious: No
  Sender: FDA-Public Use
  Company Number: US-009507513-2008USA009320

PATIENT
  Sex: Female

DRUGS (1)
  1. NEXPLANON [Suspect]
     Active Substance: ETONOGESTREL
     Dosage: LEFT UPPER ARM
     Route: 059
     Dates: start: 20200224, end: 20200724

REACTIONS (3)
  - Device breakage [Recovered/Resolved]
  - Wrong technique in device usage process [Unknown]
  - No adverse event [Unknown]
